FAERS Safety Report 4496138-3 (Version None)
Quarter: 2004Q4

REPORT INFORMATION
  Report Type: 
  Country: None (occurrence: None)
  Receive Date: 20041108
  Receipt Date: 20041102
  Transmission Date: 20050328
  Serious: Yes (Disabling)
  Sender: FDA-Public Use
  Company Number: US-MERCK-0411USA00470

PATIENT
  Sex: Male

DRUGS (4)
  1. VIOXX [Suspect]
     Indication: SPINAL CORD INJURY
     Route: 048
     Dates: start: 20001001, end: 20040401
  2. VIOXX [Suspect]
     Route: 048
     Dates: start: 20001001, end: 20040401
  3. VIOXX [Suspect]
     Indication: CARPAL TUNNEL SYNDROME
     Route: 048
     Dates: start: 20001001, end: 20040401
  4. VIOXX [Suspect]
     Route: 048
     Dates: start: 20001001, end: 20040401

REACTIONS (5)
  - DYSPNOEA [None]
  - GASTRIC HAEMORRHAGE [None]
  - JOINT SWELLING [None]
  - OEDEMA PERIPHERAL [None]
  - URINARY INCONTINENCE [None]
